FAERS Safety Report 17210817 (Version 2)
Quarter: 2020Q1

REPORT INFORMATION
  Report Type: Report from Study
  Country: None (occurrence: US)
  Receive Date: 20191227
  Receipt Date: 20200103
  Transmission Date: 20200409
  Serious: Yes (Life-Threatening, Hospitalization)
  Sender: FDA-Public Use
  Company Number: US-ABBVIE-19P-163-3208128-00

PATIENT
  Age: 48 Year
  Sex: Male
  Weight: 102.6 kg

DRUGS (25)
  1. LEVAQUIN [Concomitant]
     Active Substance: LEVOFLOXACIN
     Indication: ANTIBIOTIC PROPHYLAXIS
     Route: 048
     Dates: start: 20191210
  2. NAVITOCLAX [Suspect]
     Active Substance: NAVITOCLAX
     Indication: ACUTE LYMPHOCYTIC LEUKAEMIA
     Route: 048
     Dates: start: 20191212, end: 20191220
  3. ALLOPURINOL. [Concomitant]
     Active Substance: ALLOPURINOL
     Indication: PROPHYLAXIS
     Route: 048
     Dates: start: 20191209
  4. DIPHENHYDRAMINE (BENADRYL) [Concomitant]
     Indication: PREMEDICATION
     Route: 042
     Dates: start: 20191211
  5. ACYCLOVIR (ZOVIRAX) [Concomitant]
     Indication: ANTIVIRAL PROPHYLAXIS
     Route: 048
     Dates: start: 20191205
  6. METOPROLOL TARTRATE (LOPRESSOR) [Concomitant]
     Indication: HYPERTENSION
     Route: 048
     Dates: start: 20191209
  7. NORMAL SALINE SOLUTION (0.9% SODIUM CHLORIDE) [Concomitant]
     Dosage: DOSE: 150 ML/HR
     Route: 042
     Dates: start: 20191213, end: 20191216
  8. ONDANSETRON ODT (ZOFRAN-ODT) [Concomitant]
     Indication: PROPHYLAXIS OF NAUSEA AND VOMITING
     Dosage: AS NEEDED
     Route: 048
     Dates: start: 20191209
  9. NORMAL SALINE SOLUTION (0.9% SODIUM CHLORIDE) [Concomitant]
     Indication: PROPHYLAXIS
     Dosage: DOSE; 100 ML/HR
     Route: 042
     Dates: start: 20191209, end: 20191212
  10. MELATONIN [Concomitant]
     Active Substance: MELATONIN
     Indication: INSOMNIA
     Dosage: NIGHTLY
     Route: 048
     Dates: start: 20191209
  11. PROTONIX [Concomitant]
     Active Substance: PANTOPRAZOLE SODIUM
     Indication: GASTROOESOPHAGEAL REFLUX PROPHYLAXIS
     Route: 048
     Dates: start: 20191210
  12. CATHFLO ACTIVASE [Concomitant]
     Active Substance: ALTEPLASE
     Indication: PROPHYLAXIS
     Dosage: ROUTE: INTRACATHETER
     Dates: start: 20191210
  13. LANTUS [Concomitant]
     Active Substance: INSULIN GLARGINE
     Indication: DIABETES MELLITUS
     Dosage: DOSE: 10-40 UNITS
     Route: 058
     Dates: start: 20191211
  14. PROCHLORPERAZINE (COMPAZINE) [Concomitant]
     Indication: PROPHYLAXIS OF NAUSEA AND VOMITING
     Dosage: AS NEEDED
     Route: 042
     Dates: start: 20191212
  15. INSULIN LISPRO (HUMALOG) [Concomitant]
     Indication: DIABETES MELLITUS
     Dosage: DOSE: 0-20 UNITS?BEFORE MEALS AND NIGHTLY
     Route: 058
     Dates: start: 20191210
  16. INSULIN REGULAR (HUMULIN R) [Concomitant]
     Indication: DIABETES MELLITUS
     Route: 058
     Dates: start: 20191211
  17. SULFAMETHOXZOLE-TRIMETHOPRIM (BACTRIM DS) [Concomitant]
     Indication: ANTIBIOTIC PROPHYLAXIS
     Dosage: FREQUENCY: 2X DAILY SAT AND SUNDAY?DOSE: 800-160 MG
     Route: 048
     Dates: start: 20191214
  18. VENETOCLAX. [Suspect]
     Active Substance: VENETOCLAX
     Indication: ACUTE LYMPHOCYTIC LEUKAEMIA
     Route: 048
     Dates: start: 20191210, end: 20191210
  19. VENETOCLAX. [Suspect]
     Active Substance: VENETOCLAX
     Route: 048
     Dates: start: 20191226
  20. NAVITOCLAX [Suspect]
     Active Substance: NAVITOCLAX
     Route: 048
     Dates: start: 20191226
  21. DEXAMETHASONE. [Suspect]
     Active Substance: DEXAMETHASONE
     Indication: ACUTE LYMPHOCYTIC LEUKAEMIA
     Route: 048
     Dates: start: 20191210
  22. VINCRISTINE [Suspect]
     Active Substance: VINCRISTINE
     Indication: ACUTE LYMPHOCYTIC LEUKAEMIA
     Dosage: DAYS 1, 8, 15, 22
     Route: 042
     Dates: start: 20191210
  23. VENETOCLAX. [Suspect]
     Active Substance: VENETOCLAX
     Route: 048
     Dates: start: 20191211, end: 20191220
  24. MICAFUNGIN (MYCAMINE) [Concomitant]
     Indication: ANTIFUNGAL PROPHYLAXIS
     Route: 042
     Dates: start: 20191210
  25. ROXICODONE [Concomitant]
     Active Substance: OXYCODONE HYDROCHLORIDE
     Indication: PAIN
     Dosage: PRN
     Route: 048
     Dates: start: 20191220

REACTIONS (4)
  - Bacteraemia [Recovered/Resolved]
  - Vascular device infection [Recovered/Resolved]
  - Upper respiratory tract infection [Not Recovered/Not Resolved]
  - Sepsis [Recovered/Resolved]

NARRATIVE: CASE EVENT DATE: 20191219
